FAERS Safety Report 4694817-6 (Version None)
Quarter: 2005Q2

REPORT INFORMATION
  Report Type: 
  Country: None (occurrence: None)
  Receive Date: 20050620
  Receipt Date: 20050606
  Transmission Date: 20051028
  Serious: Yes (Other)
  Sender: FDA-Public Use
  Company Number: 2005AC00844

PATIENT
  Age: 42 Year
  Sex: Male
  Weight: 77 kg

DRUGS (8)
  1. PROPOFOL [Suspect]
     Indication: ANAESTHESIA
     Dosage: 5.2 MG KG^-1 H^-1
     Route: 042
  2. PROPOFOL [Suspect]
     Dosage: 9 MG KG^-1 H^-1
     Route: 042
  3. PROPOFOL [Suspect]
     Dosage: 2.3 MG KG-1 H-1
     Route: 042
  4. METHYLPREDNISOLONE [Suspect]
     Dosage: INITIAL
  5. METHYLPREDNISOLONE [Suspect]
  6. SEVOFLURANE [Concomitant]
     Indication: ANAESTHESIA
  7. NACL [Concomitant]
     Dosage: DURING SURGERY
     Route: 042
  8. HETASTARCH IN SODIUM CHLORIDE [Concomitant]
     Route: 042

REACTIONS (8)
  - BLOOD CREATINE PHOSPHOKINASE INCREASED [None]
  - HYPERTENSION [None]
  - LACTIC ACIDOSIS [None]
  - MYOGLOBINURIA [None]
  - PROCEDURAL HYPERTENSION [None]
  - PROPOFOL INFUSION SYNDROME [None]
  - RENAL IMPAIRMENT [None]
  - RHABDOMYOLYSIS [None]
